FAERS Safety Report 4515088-7 (Version None)
Quarter: 2004Q4

REPORT INFORMATION
  Report Type: 
  Country: None (occurrence: None)
  Receive Date: 20041201
  Receipt Date: 20041020
  Transmission Date: 20050328
  Serious: Yes (Hospitalization)
  Sender: FDA-Public Use
  Company Number: FR-AMGEN-UK096342

PATIENT
  Sex: Female
  Weight: 63 kg

DRUGS (5)
  1. NEULASTA [Suspect]
     Indication: CHEMOTHERAPY
     Route: 058
     Dates: start: 20040913, end: 20040913
  2. IFOSFAMIDE [Suspect]
     Route: 042
     Dates: start: 20040907, end: 20040911
  3. MESNA [Suspect]
     Route: 042
     Dates: start: 20040907, end: 20040912
  4. ETOPOSIDE [Suspect]
     Route: 042
     Dates: start: 20040907, end: 20040911
  5. CARBOPLATIN [Suspect]
     Route: 042
     Dates: start: 20040907, end: 20040908

REACTIONS (4)
  - CONFUSIONAL STATE [None]
  - ELECTROENCEPHALOGRAM ABNORMAL [None]
  - HALLUCINATION [None]
  - TREMOR [None]
